FAERS Safety Report 24198909 (Version 5)
Quarter: 2024Q4

REPORT INFORMATION
  Report Type: Report from Study
  Country: KR (occurrence: KR)
  Receive Date: 20240812
  Receipt Date: 20241015
  Transmission Date: 20250115
  Serious: Yes (Hospitalization)
  Sender: ABBVIE
  Company Number: KR-ABBVIE-5872896

PATIENT
  Age: 80 Year
  Sex: Female
  Weight: 62 kg

DRUGS (9)
  1. SKYRIZI [Suspect]
     Active Substance: RISANKIZUMAB-RZAA
     Indication: Psoriasis
     Dosage: FREQUENCY: ONCE
     Route: 058
     Dates: start: 20221208, end: 20221208
  2. SKYRIZI [Suspect]
     Active Substance: RISANKIZUMAB-RZAA
     Dosage: FREQUENCY: ONCE
     Route: 058
     Dates: start: 20220915, end: 20220915
  3. SKYRIZI [Suspect]
     Active Substance: RISANKIZUMAB-RZAA
     Dosage: FREQUENCY: ONCE
     Route: 058
     Dates: start: 20230303, end: 20230303
  4. SKYRIZI [Suspect]
     Active Substance: RISANKIZUMAB-RZAA
     Dosage: FREQUENCY: ONCE
     Route: 058
     Dates: start: 20230526, end: 20230526
  5. SKYRIZI [Suspect]
     Active Substance: RISANKIZUMAB-RZAA
     Dosage: FREQUENCY: ONCE
     Route: 058
     Dates: start: 20220616, end: 20220616
  6. SKYRIZI [Suspect]
     Active Substance: RISANKIZUMAB-RZAA
     Dosage: FREQUENCY: ONCE
     Route: 058
     Dates: start: 20220520, end: 20220520
  7. CHOLINE ALFOSCERATE [Concomitant]
     Active Substance: CHOLINE ALFOSCERATE
     Indication: Cardiovascular event prophylaxis
     Route: 048
     Dates: start: 20220511
  8. EDOXABAN [Concomitant]
     Active Substance: EDOXABAN
     Indication: Cardiovascular event prophylaxis
     Route: 048
     Dates: start: 20220511
  9. PRITOR [Concomitant]
     Indication: Cardiovascular event prophylaxis
     Route: 048
     Dates: start: 20220511

REACTIONS (1)
  - Sinus node dysfunction [Recovered/Resolved]

NARRATIVE: CASE EVENT DATE: 20221018
